FAERS Safety Report 18478621 (Version 2)
Quarter: 2025Q2

REPORT INFORMATION
  Report Type: Spontaneous
  Country: US (occurrence: US)
  Receive Date: 20201109
  Receipt Date: 20250621
  Transmission Date: 20250717
  Serious: Yes (Hospitalization, Other)
  Sender: AUROBINDO
  Company Number: US-MLMSERVICE-20201021-2538854-1

PATIENT
  Age: 83 Year
  Sex: Male

DRUGS (1)
  1. METHOTREXATE [Suspect]
     Active Substance: METHOTREXATE
     Indication: Rheumatoid arthritis
     Route: 065

REACTIONS (6)
  - Bacterial infection [Unknown]
  - Pneumothorax [Unknown]
  - Pneumomediastinum [Unknown]
  - Hypercalcaemia [Unknown]
  - Diffuse large B-cell lymphoma [Unknown]
  - Constipation [Unknown]
